FAERS Safety Report 5022516-X (Version None)
Quarter: 2006Q2

REPORT INFORMATION
  Report Type: 
  Country: None (occurrence: None)
  Receive Date: 20060609
  Receipt Date: 20060529
  Transmission Date: 20061013
  Serious: Yes (Other)
  Sender: FDA-Public Use
  Company Number: GB-NOVOPROD-253695

PATIENT

DRUGS (1)
  1. NOVONORM [Suspect]
     Indication: DIABETES MELLITUS

REACTIONS (1)
  - HYPOGLYCAEMIC SEIZURE [None]
